FAERS Safety Report 9083435 (Version 1)
Quarter: 2013Q1

REPORT INFORMATION
  Report Type: Spontaneous
  Country: US (occurrence: US)
  Receive Date: 20130131
  Receipt Date: 20130131
  Transmission Date: 20140127
  Serious: No
  Sender: FDA-Public Use
  Company Number: US-ABBOTT-12P-163-0993932-00

PATIENT
  Sex: Female

DRUGS (4)
  1. HUMIRA [Suspect]
     Indication: CROHN^S DISEASE
     Dates: start: 2010
  2. PRENATAL VITAMINS [Concomitant]
     Indication: VITAMIN SUPPLEMENTATION
  3. PRENATAL VITAMINS [Concomitant]
     Indication: PREGNANCY
  4. IRON [Concomitant]
     Indication: MINERAL SUPPLEMENTATION

REACTIONS (1)
  - Upper respiratory tract infection [Recovered/Resolved]
